FAERS Safety Report 21951498 (Version 1)
Quarter: 2023Q1

REPORT INFORMATION
  Report Type: Spontaneous
  Country: US (occurrence: None)
  Receive Date: 20230203
  Receipt Date: 20230203
  Transmission Date: 20230417
  Serious: No
  Sender: FDA-Public Use
  Company Number: None

PATIENT
  Age: 74 Year
  Sex: Female

DRUGS (1)
  1. CAPECITABINE [Suspect]
     Active Substance: CAPECITABINE
     Dosage: FREQUENCY : TWICE A DAY;?
     Route: 048
     Dates: start: 202206, end: 202211

REACTIONS (6)
  - Hospitalisation [None]
  - Therapy cessation [None]
  - Jaundice [None]
  - Device dislocation [None]
  - Gallbladder disorder [None]
  - Hepatic neoplasm [None]

NARRATIVE: CASE EVENT DATE: 20230203
